FAERS Safety Report 16583188 (Version 1)
Quarter: 2019Q3

REPORT INFORMATION
  Report Type: Spontaneous
  Country: TR (occurrence: TR)
  Receive Date: 20190717
  Receipt Date: 20190717
  Transmission Date: 20191004
  Serious: Yes (Death, Other)
  Sender: FDA-Public Use
  Company Number: TR-STRIDES ARCOLAB LIMITED-2019SP005990

PATIENT
  Sex: Male

DRUGS (1)
  1. TACROLIMUS. [Suspect]
     Active Substance: TACROLIMUS
     Indication: IMMUNOSUPPRESSANT DRUG THERAPY
     Dosage: 0.15 MG/KG/DAY, STARTED ON POST OPERATIVE DAY 3
     Route: 065

REACTIONS (3)
  - Burkitt^s lymphoma [Fatal]
  - Abdominal lymphadenopathy [Unknown]
  - Pancytopenia [Unknown]
